FAERS Safety Report 5711581-X (Version None)
Quarter: 2008Q2

REPORT INFORMATION
  Report Type: 
  Country: None (occurrence: None)
  Receive Date: 20080421
  Receipt Date: 20080417
  Transmission Date: 20081010
  Serious: Yes (Other)
  Sender: FDA-Public Use
  Company Number: IE-BRISTOL-MYERS SQUIBB COMPANY-14156657

PATIENT
  Sex: Female

DRUGS (1)
  1. EFAVIRENZ [Suspect]
     Indication: HIV INFECTION

REACTIONS (1)
  - ECTOPIC PREGNANCY [None]
